FAERS Safety Report 22117694 (Version 1)
Quarter: 2023Q1

REPORT INFORMATION
  Report Type: Spontaneous
  Country: GB (occurrence: None)
  Receive Date: 20230321
  Receipt Date: 20230321
  Transmission Date: 20230417
  Serious: Yes (Hospitalization, Other)
  Sender: FDA-Public Use
  Company Number: 2023A060410

PATIENT
  Sex: Female
  Weight: 65 kg

DRUGS (2)
  1. LYNPARZA [Suspect]
     Active Substance: OLAPARIB
     Indication: Ovarian cancer
     Dosage: 300MG BD; ;
     Dates: start: 20221211, end: 20230224
  2. LYNPARZA [Suspect]
     Active Substance: OLAPARIB
     Indication: Adverse drug reaction
     Dosage: 300MG BD; ;
     Dates: start: 20221211, end: 20230224

REACTIONS (1)
  - Hepatitis [Not Recovered/Not Resolved]

NARRATIVE: CASE EVENT DATE: 20230201
